FAERS Safety Report 8270872-1 (Version None)
Quarter: 2012Q2

REPORT INFORMATION
  Report Type: 
  Country: None (occurrence: None)
  Receive Date: 20120410
  Receipt Date: 20120410
  Transmission Date: 20120825
  Serious: Yes (Other)
  Sender: FDA-Public Use
  Company Number: None

PATIENT
  Sex: Female
  Weight: 88.904 kg

DRUGS (1)
  1. VICTOZA [Suspect]
     Indication: DIABETES MELLITUS
     Dosage: 0.6
     Route: 030
     Dates: start: 20120202, end: 20120405

REACTIONS (7)
  - EPISTAXIS [None]
  - DYSPNOEA [None]
  - INJECTION SITE PRURITUS [None]
  - INJECTION SITE ERYTHEMA [None]
  - FLUID RETENTION [None]
  - INJECTION SITE SWELLING [None]
  - HYPOAESTHESIA [None]
